FAERS Safety Report 19235886 (Version 1)
Quarter: 2021Q2

REPORT INFORMATION
  Report Type: Spontaneous
  Country: CN (occurrence: CN)
  Receive Date: 20210510
  Receipt Date: 20210510
  Transmission Date: 20210717
  Serious: Yes (Disabling, Other)
  Sender: FDA-Public Use
  Company Number: CN-SHANGHAI HENGRUI PHARMACEUTICAL CO., LTD.-2110360

PATIENT
  Age: 30 Year
  Sex: Male
  Weight: 80 kg

DRUGS (7)
  1. MIDAZOLAM INJECTION [Suspect]
     Active Substance: MIDAZOLAM HYDROCHLORIDE
     Dates: start: 20210414, end: 20210414
  2. ROCURONIUM BROMIDE INJECTION [Suspect]
     Active Substance: ROCURONIUM BROMIDE
     Dates: start: 20210414, end: 20210414
  3. FLUMAZENIL INJECTION USP [Suspect]
     Active Substance: FLUMAZENIL
     Dates: start: 20210414, end: 20210414
  4. SUFENTANIL CITRATE INJECTION [Suspect]
     Active Substance: SUFENTANIL CITRATE
     Dates: start: 20210414, end: 20210414
  5. PROPOFOL INJECTION [Suspect]
     Active Substance: PROPOFOL
     Dates: start: 20210414, end: 20210414
  6. SEVOFLURANE USP, 100%, LIQUID FOR INHALATION [Suspect]
     Active Substance: SEVOFLURANE
     Indication: INDUCTION OF ANAESTHESIA
     Route: 055
     Dates: start: 20210414, end: 20210414
  7. NEOSTIGMINE METILSULFATE INJECTION [Suspect]
     Active Substance: NEOSTIGMINE METHYLSULFATE
     Dates: start: 20210414, end: 20210414

REACTIONS (2)
  - Acute respiratory distress syndrome [Recovered/Resolved with Sequelae]
  - Pulmonary oedema [Recovered/Resolved with Sequelae]

NARRATIVE: CASE EVENT DATE: 20210414
